FAERS Safety Report 7879540-9 (Version None)
Quarter: 2011Q4

REPORT INFORMATION
  Report Type: 
  Country: None (occurrence: None)
  Receive Date: 20111101
  Receipt Date: 20111019
  Transmission Date: 20120403
  Serious: Yes (Hospitalization)
  Sender: FDA-Public Use
  Company Number: US-GLAXOSMITHKLINE-A0881793A

PATIENT
  Age: 75 Year
  Sex: Male
  Weight: 73.6 kg

DRUGS (6)
  1. LOTREL [Concomitant]
  2. AMARYL [Concomitant]
  3. AVANDIA [Suspect]
     Indication: DIABETES MELLITUS
     Dosage: 4MG TWICE PER DAY
     Route: 048
     Dates: start: 20030619, end: 20070101
  4. PREVACID [Concomitant]
  5. MICARDIS [Concomitant]
  6. VYTORIN [Concomitant]

REACTIONS (3)
  - MYOCARDIAL INFARCTION [None]
  - ARRHYTHMIA [None]
  - ATRIAL FIBRILLATION [None]
